FAERS Safety Report 24438957 (Version 1)
Quarter: 2024Q4

REPORT INFORMATION
  Report Type: Spontaneous
  Country: US (occurrence: None)
  Receive Date: 20241011
  Receipt Date: 20241011
  Transmission Date: 20250114
  Serious: Yes (Disabling, Other)
  Sender: Public
  Company Number: None

PATIENT
  Age: 42 Year
  Sex: Male
  Weight: 99.9 kg

DRUGS (7)
  1. FENTANYL [Suspect]
     Active Substance: FENTANYL
     Indication: Pain
     Dates: end: 20220409
  2. FENTANYL [Suspect]
     Active Substance: FENTANYL
     Indication: Accident at work
  3. BUPIVACAINE [Suspect]
     Active Substance: BUPIVACAINE
  4. METHYLPREDNISOLONE [Concomitant]
     Active Substance: METHYLPREDNISOLONE
  5. LIDOCAINE [Concomitant]
     Active Substance: LIDOCAINE
  6. ADACEL TDAP [Suspect]
     Active Substance: TETANUS TOXOID, REDUCED DIPHTHERIA TOXOID AND ACELLULAR PERTUSSIS VACCINE ADSORBED, TDAP
  7. B12 [Concomitant]

REACTIONS (9)
  - Transient ischaemic attack [None]
  - Cardiac disorder [None]
  - Overdose [None]
  - Blood creatine phosphokinase increased [None]
  - Nervous system disorder [None]
  - Pain [None]
  - Treatment delayed [None]
  - Hypothalamic pituitary adrenal axis suppression [None]
  - Feeling abnormal [None]

NARRATIVE: CASE EVENT DATE: 20220302
